FAERS Safety Report 6031613-1 (Version None)
Quarter: 2009Q1

REPORT INFORMATION
  Report Type: 
  Country: None (occurrence: None)
  Receive Date: 20090108
  Receipt Date: 20081230
  Transmission Date: 20090719
  Serious: Yes (Hospitalization, Other)
  Sender: FDA-Public Use
  Company Number: ES-ELI_LILLY_AND_COMPANY-ES200901000011

PATIENT
  Age: 76 Year
  Sex: Male

DRUGS (4)
  1. FORTEO [Suspect]
     Dosage: 20 UG, UNKNOWN
     Route: 058
     Dates: start: 20071101
  2. ENOXAPARIN SODIUM [Concomitant]
     Dosage: 1 D/F, DAILY (1/D)
  3. IDEOS [Concomitant]
     Dosage: 1 D/F, DAILY (1/D)
  4. LORAZEPAM [Concomitant]
     Dosage: 1 D/F, DAILY (1/D)

REACTIONS (3)
  - DYSPNOEA [None]
  - MEDICAL DEVICE COMPLICATION [None]
  - PULMONARY EMBOLISM [None]
